FAERS Safety Report 14166812 (Version 1)
Quarter: 2017Q4

REPORT INFORMATION
  Report Type: Spontaneous
  Country: FR (occurrence: FR)
  Receive Date: 20171107
  Receipt Date: 20171107
  Transmission Date: 20180321
  Serious: Yes (Other)
  Sender: FDA-Public Use
  Company Number: FR-MERCK KGAA-2033475

PATIENT
  Age: 45 Year
  Sex: Female

DRUGS (2)
  1. NOVOTHYROX [Suspect]
     Active Substance: LEVOTHYROXINE SODIUM
     Indication: HYPOTHYROIDISM
     Route: 048
     Dates: start: 201704
  2. NOVOTHYROX [Suspect]
     Active Substance: LEVOTHYROXINE SODIUM
     Route: 048
     Dates: start: 20170901, end: 20171009

REACTIONS (20)
  - Insomnia [Recovering/Resolving]
  - Malaise [Recovering/Resolving]
  - Depression [Recovering/Resolving]
  - Product formulation issue [Recovering/Resolving]
  - Vertigo [Recovering/Resolving]
  - Hyperhidrosis [Recovering/Resolving]
  - Chest pain [Recovering/Resolving]
  - Weight increased [Recovering/Resolving]
  - Anxiety [Recovering/Resolving]
  - Anhedonia [Recovering/Resolving]
  - Fatigue [Recovering/Resolving]
  - Eye irritation [Recovering/Resolving]
  - Pain in extremity [Recovering/Resolving]
  - Headache [Recovering/Resolving]
  - Tendonitis [Recovering/Resolving]
  - Irritability [Recovering/Resolving]
  - Blood thyroid stimulating hormone decreased [Not Recovered/Not Resolved]
  - Myalgia [Recovering/Resolving]
  - Diffuse alopecia [Recovering/Resolving]
  - Decreased appetite [Recovering/Resolving]

NARRATIVE: CASE EVENT DATE: 201704
